FAERS Safety Report 9577764 (Version 1)
Quarter: 2013Q4

REPORT INFORMATION
  Report Type: Spontaneous
  Country: US (occurrence: US)
  Receive Date: 20131001
  Receipt Date: 20131001
  Transmission Date: 20140711
  Serious: No
  Sender: FDA-Public Use
  Company Number: US-AMGEN-USASP2013009446

PATIENT
  Age: 58 Year
  Sex: Female
  Weight: 68 kg

DRUGS (11)
  1. ENBREL [Suspect]
     Indication: PRODUCT USED FOR UNKNOWN INDICATION
     Dosage: 25 MG/0.5 ML, 2 TIMES/WK
     Route: 058
  2. PROTONIX [Concomitant]
     Dosage: 20 MG, UNK
  3. TAZORAC [Concomitant]
     Dosage: 0.05 %, UNK
  4. LIPITOR [Concomitant]
     Dosage: 10 MG, UNK
  5. TRAMADOL HCL [Concomitant]
     Dosage: 50 MG, UNK
  6. NAPROXEN [Concomitant]
     Dosage: 250 MG, UNK
  7. CLOBETASOL [Concomitant]
     Dosage: 0.05 %, UNK
  8. METOPROLOL [Concomitant]
     Dosage: 25 MG, UNK
  9. LOSARTAN POTASICO [Concomitant]
     Dosage: 25 MG, UNK
  10. ZANAFLEX [Concomitant]
     Dosage: 2 MG, UNK
  11. CARDIZEM                           /00489701/ [Concomitant]
     Dosage: 120 MG, UNK

REACTIONS (2)
  - Nasal congestion [Recovering/Resolving]
  - Respiratory tract congestion [Recovering/Resolving]
